FAERS Safety Report 24226571 (Version 1)
Quarter: 2024Q3

REPORT INFORMATION
  Report Type: Spontaneous
  Country: PL (occurrence: PL)
  Receive Date: 20240820
  Receipt Date: 20240820
  Transmission Date: 20241017
  Serious: Yes (Life-Threatening, Hospitalization)
  Sender: TEVA
  Company Number: None

PATIENT
  Age: 69 Year
  Sex: Male
  Weight: 83 kg

DRUGS (5)
  1. ETOPOSIDE [Suspect]
     Active Substance: ETOPOSIDE
     Indication: Lung neoplasm malignant
     Dosage: THERAPY ONGOING
     Route: 042
     Dates: start: 20211220, end: 20220209
  2. CISPLATIN [Suspect]
     Active Substance: CISPLATIN
     Indication: Lung neoplasm malignant
     Dosage: THERAPY ONGOING
     Route: 042
     Dates: start: 20211220, end: 20220209
  3. ENOXAPARIN SODIUM [Concomitant]
     Active Substance: ENOXAPARIN SODIUM
     Indication: Product used for unknown indication
     Dosage: THERAPY ONGOING: DOSE: 0.4
     Route: 058
  4. NEBIVOLOL [Concomitant]
     Active Substance: NEBIVOLOL
     Indication: Product used for unknown indication
     Dosage: THERAPY ONGOING; DOSE: 5
     Route: 048
  5. ADADUT [Concomitant]
     Indication: Product used for unknown indication
     Dosage: THERAPY ONGOING; DOSE: 0.5
     Route: 048

REACTIONS (3)
  - Anaemia [Not Recovered/Not Resolved]
  - Thrombocytopenia [Not Recovered/Not Resolved]
  - Leukopenia [Not Recovered/Not Resolved]

NARRATIVE: CASE EVENT DATE: 20220223
